FAERS Safety Report 6012014-9 (Version None)
Quarter: 2008Q4

REPORT INFORMATION
  Report Type: 
  Country: None (occurrence: None)
  Receive Date: 20081218
  Receipt Date: 20081027
  Transmission Date: 20090506
  Serious: No
  Sender: FDA-Public Use
  Company Number: US-ASTRAZENECA-2008UW23962

PATIENT
  Sex: Male
  Weight: 90.7 kg

DRUGS (2)
  1. CRESTOR [Suspect]
     Indication: BLOOD CHOLESTEROL INCREASED
     Route: 048
  2. METFORMIN HCL [Concomitant]

REACTIONS (1)
  - MUSCLE SPASMS [None]
